FAERS Safety Report 8342124-2 (Version None)
Quarter: 2012Q2

REPORT INFORMATION
  Report Type: 
  Country: None (occurrence: None)
  Receive Date: 20120507
  Receipt Date: 20120424
  Transmission Date: 20120825
  Serious: Yes (Other)
  Sender: FDA-Public Use
  Company Number: GB-TEVA-2011003135

PATIENT
  Sex: Male

DRUGS (8)
  1. FLUCONAZOLE [Concomitant]
     Dates: start: 20110519
  2. DAUNORUBICIN HYDROCHLORIDE [Suspect]
     Dates: start: 20110519, end: 20110528
  3. ETOPOSIDE [Suspect]
     Dates: start: 20110519, end: 20110528
  4. SENNA-MINT WAF [Concomitant]
     Dates: start: 20110606
  5. CYTARABINE [Suspect]
     Dates: start: 20110519, end: 20110528
  6. MOVIPREP [Concomitant]
     Dates: start: 20110612
  7. ASPIRIN [Concomitant]
     Dates: start: 20110616
  8. LESTAURTINIB [Suspect]
     Indication: ACUTE MYELOID LEUKAEMIA
     Dosage: LESTAURTINIB (CEP-701) OR PLACEBO
     Route: 048
     Dates: start: 20110519, end: 20110528

REACTIONS (1)
  - MYOCARDIAL ISCHAEMIA [None]
